FAERS Safety Report 18757441 (Version 1)
Quarter: 2021Q1

REPORT INFORMATION
  Report Type: Spontaneous
  Country: US (occurrence: US)
  Receive Date: 20210119
  Receipt Date: 20210119
  Transmission Date: 20210419
  Serious: Yes (Hospitalization, Other)
  Sender: FDA-Public Use
  Company Number: US-HIKMA PHARMACEUTICALS USA INC.-US-H14001-21-53387

PATIENT
  Age: 30 Year
  Sex: Female

DRUGS (3)
  1. QUETIAPINE. [Suspect]
     Active Substance: QUETIAPINE
     Indication: SUICIDE ATTEMPT
     Route: 065
  2. TRAZODONE [Suspect]
     Active Substance: TRAZODONE HYDROCHLORIDE
     Indication: SUICIDE ATTEMPT
     Route: 065
  3. VENLAFAXINE [Suspect]
     Active Substance: VENLAFAXINE HYDROCHLORIDE
     Indication: SUICIDE ATTEMPT
     Route: 065

REACTIONS (10)
  - Weight decreased [Unknown]
  - Palpitations [Recovered/Resolved]
  - Electrocardiogram QT prolonged [Recovered/Resolved]
  - Sedation [Recovered/Resolved]
  - Abdominal pain [Unknown]
  - Asthenia [Unknown]
  - Hypotension [Recovered/Resolved]
  - Intentional overdose [Recovered/Resolved]
  - Lymphadenopathy [Unknown]
  - Suicide attempt [Unknown]
